FAERS Safety Report 10637975 (Version 2)
Quarter: 2015Q1

REPORT INFORMATION
  Report Type: Spontaneous
  Country: IN (occurrence: IN)
  Receive Date: 20141208
  Receipt Date: 20150128
  Transmission Date: 20150720
  Serious: Yes (Other)
  Sender: FDA-Public Use
  Company Number: PHHY2014IN156649

PATIENT
  Age: 46 Year
  Sex: Female

DRUGS (2)
  1. LEVETIRACETAM. [Suspect]
     Active Substance: LEVETIRACETAM
     Indication: GENERALISED TONIC-CLONIC SEIZURE
     Dosage: 20 MG/KG, UNK
     Route: 065
  2. LEVETIRACETAM. [Suspect]
     Active Substance: LEVETIRACETAM
     Dosage: 500 MG, 8TH HOURLY
     Route: 065

REACTIONS (6)
  - Mental impairment [Recovered/Resolved]
  - Unresponsive to stimuli [Recovered/Resolved]
  - Stupor [Recovered/Resolved]
  - Toxic encephalopathy [Recovered/Resolved]
  - Status epilepticus [Recovered/Resolved]
  - Depressed level of consciousness [Recovered/Resolved]
